FAERS Safety Report 6150289-6 (Version None)
Quarter: 2009Q2

REPORT INFORMATION
  Report Type: 
  Country: None (occurrence: None)
  Receive Date: 20090409
  Receipt Date: 20090330
  Transmission Date: 20091009
  Serious: Yes (Hospitalization)
  Sender: FDA-Public Use
  Company Number: DE-MERCK-0904DEU00001

PATIENT
  Age: 74 Year
  Sex: Male
  Weight: 95 kg

DRUGS (8)
  1. JANUVIA [Suspect]
     Indication: TYPE 2 DIABETES MELLITUS
     Route: 048
     Dates: start: 20080515, end: 20081001
  2. METFORMIN [Concomitant]
     Indication: TYPE 2 DIABETES MELLITUS
     Route: 065
  3. GLYBURIDE [Concomitant]
     Indication: TYPE 2 DIABETES MELLITUS
     Route: 065
  4. VASOTEC [Concomitant]
     Route: 048
  5. ASPIRIN [Concomitant]
     Route: 065
  6. CLOPIDOGREL BISULFATE [Concomitant]
     Route: 048
     Dates: start: 20071101
  7. ZOCOR [Concomitant]
     Route: 048
     Dates: start: 20071101
  8. BISOPROLOL [Concomitant]
     Route: 065
     Dates: start: 20070501

REACTIONS (1)
  - GASTROINTESTINAL HAEMORRHAGE [None]
